FAERS Safety Report 12280739 (Version 1)
Quarter: 2016Q2

REPORT INFORMATION
  Report Type: Spontaneous
  Country: US (occurrence: US)
  Receive Date: 20160419
  Receipt Date: 20160419
  Transmission Date: 20160815
  Serious: Yes (Other)
  Sender: FDA-Public Use
  Company Number: US-AUROBINDO-AUR-APL-2016-04702

PATIENT

DRUGS (1)
  1. METHYLPREDNISOLONE. [Suspect]
     Active Substance: METHYLPREDNISOLONE
     Indication: MIGRAINE
     Route: 042

REACTIONS (7)
  - Anaphylactic reaction [Recovered/Resolved]
  - Ventricular hypokinesia [Recovered/Resolved]
  - Urticaria [Recovered/Resolved]
  - Rash erythematous [Recovered/Resolved]
  - Akinesia [Recovered/Resolved]
  - Respiratory distress [Recovered/Resolved]
  - Ventricular dysfunction [Recovered/Resolved]
